FAERS Safety Report 6360752-0 (Version None)
Quarter: 2009Q3

REPORT INFORMATION
  Report Type: 
  Country: None (occurrence: None)
  Receive Date: 20090918
  Receipt Date: 20090914
  Transmission Date: 20100115
  Serious: Yes (Hospitalization)
  Sender: FDA-Public Use
  Company Number: FR-JNJFOC-20090904371

PATIENT
  Age: 4 Decade
  Sex: Male

DRUGS (1)
  1. HALDOL DECANOAS [Suspect]
     Indication: SCHIZOPHRENIA
     Route: 065

REACTIONS (2)
  - INJECTION SITE ABSCESS [None]
  - SACROILIITIS [None]
